FAERS Safety Report 24022947 (Version 1)
Quarter: 2024Q2

REPORT INFORMATION
  Report Type: Spontaneous
  Country: FR (occurrence: FR)
  Receive Date: 20240627
  Receipt Date: 20240627
  Transmission Date: 20240716
  Serious: No
  Sender: FDA-Public Use
  Company Number: FR-ROCHE-3550792

PATIENT
  Age: 72 Year
  Sex: Female

DRUGS (1)
  1. VABYSMO [Suspect]
     Active Substance: FARICIMAB\FARICIMAB-SVOA
     Indication: Product used for unknown indication
     Dosage: LAST INTRAVITREAL INJECTION OF FARICIMAB IN RIGHT EYE: 05/MAR/2024; LEFT EYE: 19/MAR/2024
     Route: 050
     Dates: start: 20231128

REACTIONS (5)
  - Vitreous floaters [Recovering/Resolving]
  - Vitritis [Recovering/Resolving]
  - Intraocular pressure increased [Recovering/Resolving]
  - Iridocyclitis [Recovering/Resolving]
  - Paracentesis eye [Recovering/Resolving]

NARRATIVE: CASE EVENT DATE: 20240305
